FAERS Safety Report 25858448 (Version 1)
Quarter: 2025Q3

REPORT INFORMATION
  Report Type: Spontaneous
  Country: US (occurrence: US)
  Receive Date: 20250929
  Receipt Date: 20250929
  Transmission Date: 20251020
  Serious: Yes (Other)
  Sender: MYLAN
  Company Number: US-MYLANLABS-2025M1081910

PATIENT
  Age: 46 Year
  Sex: Female

DRUGS (9)
  1. MYCOPHENOLATE MOFETIL [Suspect]
     Active Substance: MYCOPHENOLATE MOFETIL
     Indication: Overlap syndrome
     Dosage: 500 MILLIGRAM, BID
  2. MYCOPHENOLATE MOFETIL [Suspect]
     Active Substance: MYCOPHENOLATE MOFETIL
     Indication: Polymyositis
  3. MYCOPHENOLATE MOFETIL [Suspect]
     Active Substance: MYCOPHENOLATE MOFETIL
     Indication: Systemic scleroderma
  4. METHOTREXATE [Suspect]
     Active Substance: METHOTREXATE
     Indication: Overlap syndrome
     Dosage: 15 MILLIGRAM, QW
  5. METHOTREXATE [Suspect]
     Active Substance: METHOTREXATE
     Indication: Polymyositis
  6. METHOTREXATE [Suspect]
     Active Substance: METHOTREXATE
     Indication: Systemic scleroderma
  7. Immunoglobulin [Concomitant]
     Indication: Overlap syndrome
  8. Immunoglobulin [Concomitant]
     Indication: Polymyositis
  9. Immunoglobulin [Concomitant]
     Indication: Systemic scleroderma

REACTIONS (3)
  - Neutropenia [Recovered/Resolved]
  - Rash [Unknown]
  - Off label use [Unknown]
